FAERS Safety Report 17246935 (Version 1)
Quarter: 2019Q4

REPORT INFORMATION
  Report Type: Spontaneous
  Country: US (occurrence: US)
  Receive Date: 20191213
  Receipt Date: 20191213
  Transmission Date: 20200122
  Serious: No
  Sender: FDA-Public Use
  Company Number: None

PATIENT
  Age: 79 Year
  Sex: Female

DRUGS (1)
  1. SYNVISC-ONE [Suspect]
     Active Substance: HYLAN G-F 20
     Route: 013
     Dates: start: 201912

REACTIONS (2)
  - Product dispensing error [None]
  - Product communication issue [None]

NARRATIVE: CASE EVENT DATE: 20191213
